FAERS Safety Report 23601980 (Version 1)
Quarter: 2024Q1

REPORT INFORMATION
  Report Type: Spontaneous
  Country: US (occurrence: US)
  Receive Date: 20240306
  Receipt Date: 20240306
  Transmission Date: 20240410
  Serious: No
  Sender: FDA-Public Use
  Company Number: US-SA-SAC20240304001369

PATIENT
  Age: 44 Year
  Sex: Female

DRUGS (2)
  1. REZUROCK [Suspect]
     Active Substance: BELUMOSUDIL
     Dosage: 200 MG, QD
     Route: 048
  2. XOSPATA [Concomitant]
     Active Substance: GILTERITINIB
     Dosage: UNK

REACTIONS (1)
  - Nasopharyngitis [Recovering/Resolving]
